FAERS Safety Report 14777587 (Version 3)
Quarter: 2018Q4

REPORT INFORMATION
  Report Type: Spontaneous
  Country: US (occurrence: US)
  Receive Date: 20180419
  Receipt Date: 20181126
  Transmission Date: 20190204
  Serious: Yes (Hospitalization)
  Sender: FDA-Public Use
  Company Number: US-PFIZER INC-2018157038

PATIENT
  Age: 61 Year
  Sex: Female

DRUGS (2)
  1. SUTENT [Suspect]
     Active Substance: SUNITINIB MALATE
     Dosage: 25 MG, UNK
  2. SUTENT [Suspect]
     Active Substance: SUNITINIB MALATE
     Dosage: 12.5 MG, CYCLIC [14 DAYS, 7 DAYS OFF]

REACTIONS (4)
  - Nausea [Unknown]
  - Diarrhoea [Unknown]
  - Malaise [Unknown]
  - Dehydration [Unknown]
